FAERS Safety Report 17208303 (Version 1)
Quarter: 2019Q4

REPORT INFORMATION
  Report Type: Report from Study
  Country: CO (occurrence: CO)
  Receive Date: 20191227
  Receipt Date: 20191227
  Transmission Date: 20200122
  Serious: Yes (Hospitalization)
  Sender: FDA-Public Use
  Company Number: CO-UCBSA-2019055673

PATIENT
  Age: 61 Year
  Sex: Female

DRUGS (3)
  1. DICLOFENAC [Suspect]
     Active Substance: DICLOFENAC
     Indication: INFLAMMATION
     Dosage: ONE APPLICATION
     Dates: start: 20191215, end: 20191215
  2. CERTOLIZUMAB PEGOL [Suspect]
     Active Substance: CERTOLIZUMAB PEGOL
     Indication: RHEUMATOID ARTHRITIS
     Dosage: 200 MILLIGRAM, EV 2 WEEKS(QOW)
     Route: 058
     Dates: start: 20191031
  3. DIPIRONE [Suspect]
     Active Substance: METAMIZOLE SODIUM
     Indication: INFLAMMATION
     Dosage: ONE APPLICATION
     Dates: start: 20191215, end: 20191215

REACTIONS (4)
  - Hypoaesthesia oral [Recovering/Resolving]
  - Syncope [Recovered/Resolved]
  - Myositis [Unknown]
  - Feeling hot [Recovering/Resolving]

NARRATIVE: CASE EVENT DATE: 20191215
